FAERS Safety Report 4760820-0 (Version None)
Quarter: 2005Q3

REPORT INFORMATION
  Report Type: 
  Country: None (occurrence: None)
  Receive Date: 20050901
  Receipt Date: 20050824
  Transmission Date: 20060218
  Serious: Yes (Other)
  Sender: FDA-Public Use
  Company Number: 2005US-00674

PATIENT
  Sex: Male

DRUGS (1)
  1. ACETAMINOPHEN/PSEUDOEPHEDRINE HCL/DEXTROMETHORPHAN HBR(DEXTROMETHORPHA [Suspect]
     Dosage: ORAL
     Route: 048

REACTIONS (5)
  - DRUG ABUSER [None]
  - DRUG DEPENDENCE [None]
  - DRUG TOLERANCE [None]
  - DRUG WITHDRAWAL SYNDROME [None]
  - POISONING [None]
